FAERS Safety Report 8808190 (Version 1)
Quarter: 2012Q4

REPORT INFORMATION
  Report Type: 
  Country: US (occurrence: US)
  Receive Date: 20120925
  Receipt Date: 20120925
  Transmission Date: 20130627
  Serious: No
  Sender: FDA-Public Use
  Company Number: US-ASTRAZENECA-2012SE64822

PATIENT
  Age: 42 Year
  Sex: Female
  Weight: 124.3 kg

DRUGS (3)
  1. NEXIUM [Suspect]
     Indication: GASTROOESOPHAGEAL REFLUX DISEASE
     Route: 048
  2. CELEBREX [Concomitant]
     Indication: MYALGIA
  3. DETROL [Concomitant]
     Indication: STRESS URINARY INCONTINENCE

REACTIONS (2)
  - Dyspepsia [Not Recovered/Not Resolved]
  - Drug dose omission [Unknown]
